FAERS Safety Report 6821819-3 (Version None)
Quarter: 2010Q3

REPORT INFORMATION
  Report Type: 
  Country: None (occurrence: None)
  Receive Date: 20100708
  Receipt Date: 20100630
  Transmission Date: 20110219
  Serious: Yes (Hospitalization)
  Sender: FDA-Public Use
  Company Number: DE-BIOGENIDEC-2010BI021960

PATIENT
  Age: 61 Year
  Sex: Male
  Weight: 96 kg

DRUGS (3)
  1. TYSABRI [Suspect]
     Indication: MULTIPLE SCLEROSIS
     Route: 042
     Dates: start: 20071011, end: 20091230
  2. TOLPERISON [Concomitant]
     Indication: PAIN
     Route: 048
     Dates: start: 20081227
  3. ENOXAPARIN [Concomitant]
     Route: 058

REACTIONS (1)
  - DEEP VEIN THROMBOSIS [None]
